FAERS Safety Report 19657029 (Version 10)
Quarter: 2025Q3

REPORT INFORMATION
  Report Type: Spontaneous
  Country: IN (occurrence: IN)
  Receive Date: 20210804
  Receipt Date: 20250924
  Transmission Date: 20251021
  Serious: Yes (Hospitalization, Other)
  Sender: PFIZER
  Company Number: IN-PFIZER INC-2020346697

PATIENT
  Age: 70 Year
  Sex: Female

DRUGS (7)
  1. PALBOCICLIB [Suspect]
     Active Substance: PALBOCICLIB
     Indication: Breast cancer metastatic
     Route: 048
     Dates: start: 20200917
  2. FEMARA [Concomitant]
     Active Substance: LETROZOLE
     Route: 048
  3. LETROZOLE [Concomitant]
     Active Substance: LETROZOLE
  4. GABAPENTIN [Concomitant]
     Active Substance: GABAPENTIN
  5. AZULIX 2 MF FORTE [Concomitant]
  6. ZITEN [TENELIGLIPTIN HYDROBROMIDE] [Concomitant]
  7. VOGLIGRESS [Concomitant]

REACTIONS (23)
  - Radicular pain [Unknown]
  - Back pain [Unknown]
  - Gait disturbance [Unknown]
  - Burning sensation [Unknown]
  - Paraesthesia [Unknown]
  - Hyperaesthesia [Unknown]
  - Spinal cord disorder [Unknown]
  - Pathological fracture [Unknown]
  - Glycosylated haemoglobin increased [Unknown]
  - Breast cancer metastatic [Unknown]
  - Malignant neoplasm progression [Unknown]
  - Metastases to bone [Unknown]
  - Pain [Unknown]
  - Peroneal nerve palsy [Unknown]
  - Spinal instability [Unknown]
  - Osteosclerosis [Unknown]
  - Spondylolisthesis [Unknown]
  - Arthropathy [Unknown]
  - Pain in extremity [Unknown]
  - Intervertebral disc protrusion [Unknown]
  - Ligamentum flavum hypertrophy [Unknown]
  - Vertebral foraminal stenosis [Unknown]
  - Off label use [Unknown]

NARRATIVE: CASE EVENT DATE: 20210614
